FAERS Safety Report 11790158 (Version 1)
Quarter: 2015Q4

REPORT INFORMATION
  Report Type: Other
  Country: JP (occurrence: JP)
  Receive Date: 20151201
  Receipt Date: 20151201
  Transmission Date: 20160305
  Serious: Yes (Other)
  Sender: FDA-Public Use
  Company Number: JP-DEP_13113_2015

PATIENT
  Age: 12 Month

DRUGS (4)
  1. NON-STEROIDAL ANTI-INFLAMMATORY DRUGS [Concomitant]
     Indication: PAIN
     Dosage: DF
  2. FENTANYL. [Suspect]
     Active Substance: FENTANYL
     Dosage: BOLUS OF FENTANYL FOR 1 HOUR, WITH A 15 MINUTE INTERVAL BETWEEN BOLUSES, IF PAIN OCCURRED
     Route: 040
  3. ACETAMINOPHEN. [Concomitant]
     Active Substance: ACETAMINOPHEN
     Indication: PAIN
     Dosage: DF
  4. FENTANYL. [Suspect]
     Active Substance: FENTANYL
     Indication: PROCEDURAL PAIN
     Dosage: DOSING SCALE: 0.5 OR 1.0 MCG/KG/HR
     Route: 042

REACTIONS (1)
  - Apnoea [Unknown]
